FAERS Safety Report 24817830 (Version 3)
Quarter: 2025Q1

REPORT INFORMATION
  Report Type: Report from Study
  Country: CA (occurrence: CA)
  Receive Date: 20250108
  Receipt Date: 20250123
  Transmission Date: 20250408
  Serious: Yes (Hospitalization)
  Sender: SAMSUNG BIOEPIS
  Company Number: CA-SAMSUNG BIOEPIS-SB-2025-00021

PATIENT
  Age: 40 Year
  Sex: Female

DRUGS (4)
  1. RENFLEXIS [Suspect]
     Active Substance: INFLIXIMAB-ABDA
     Indication: Ankylosing spondylitis
     Dosage: LOADING;
     Route: 042
     Dates: start: 20241223, end: 20241223
  2. SULFASALAZINE [Concomitant]
     Active Substance: SULFASALAZINE
     Indication: Product used for unknown indication
  3. NAPROXEN [Concomitant]
     Active Substance: NAPROXEN
     Indication: Product used for unknown indication
  4. PREGABALIN [Concomitant]
     Active Substance: PREGABALIN
     Indication: Product used for unknown indication

REACTIONS (13)
  - Loss of consciousness [Recovered/Resolved]
  - Contusion [Recovering/Resolving]
  - Rash pruritic [Recovering/Resolving]
  - Rash erythematous [Recovering/Resolving]
  - Eczema [Recovering/Resolving]
  - Feeling cold [Recovering/Resolving]
  - Tremor [Recovering/Resolving]
  - Swelling [Recovering/Resolving]
  - Pain [Recovering/Resolving]
  - Asthenia [Recovering/Resolving]
  - Drug hypersensitivity [Recovering/Resolving]
  - Immunodeficiency [Recovering/Resolving]
  - Bacterial infection [Recovering/Resolving]

NARRATIVE: CASE EVENT DATE: 20241226
